FAERS Safety Report 8389216-X (Version None)
Quarter: 2012Q2

REPORT INFORMATION
  Report Type: 
  Country: None (occurrence: None)
  Receive Date: 20120528
  Receipt Date: 20120522
  Transmission Date: 20120825
  Serious: No
  Sender: FDA-Public Use
  Company Number: PHEH2012US010616

PATIENT
  Sex: Male
  Weight: 79.365 kg

DRUGS (26)
  1. AMLODIPINE BESYLATE [Concomitant]
  2. MESALAMINE [Concomitant]
  3. NORCO [Concomitant]
  4. BACTRIM [Concomitant]
  5. POLYETHYLENE GLYCOL [Concomitant]
  6. ROPINIROLE [Concomitant]
  7. COLCHICINE [Concomitant]
  8. ISOSORBIDE MONONITRATE [Concomitant]
     Route: 048
  9. SPIRONOLACTONE [Concomitant]
     Route: 048
  10. MIRALAX [Concomitant]
  11. TYLENOL [Concomitant]
  12. MAGNESIUM [Concomitant]
     Route: 048
  13. ADVICOR [Concomitant]
  14. VITAMIN D [Concomitant]
  15. TASIGNA [Suspect]
     Dosage: 150 MG, BID
     Route: 048
  16. LASIX + K [Concomitant]
  17. FERROUS SULFATE TAB [Concomitant]
  18. TASIGNA [Suspect]
     Dosage: 150 MG, QD
     Route: 048
     Dates: start: 20120515
  19. METOCLOPRAMIDE [Concomitant]
  20. CALCIUM CARBONATE [Concomitant]
  21. FOLIC ACID [Concomitant]
  22. CARVEDILOL [Concomitant]
     Route: 048
  23. DOXEPIN HYDROCHLORIDE [Concomitant]
     Route: 048
  24. FISH OIL [Concomitant]
     Route: 048
  25. SIMETHICONE [Concomitant]
     Route: 048
  26. ASPIRIN [Concomitant]
     Route: 048

REACTIONS (3)
  - ANAEMIA [None]
  - DIARRHOEA [None]
  - WHITE BLOOD CELL COUNT DECREASED [None]
